FAERS Safety Report 7049622-2 (Version None)
Quarter: 2010Q4

REPORT INFORMATION
  Report Type: 
  Country: None (occurrence: None)
  Receive Date: 20101012
  Receipt Date: 20100928
  Transmission Date: 20110411
  Serious: Yes (Hospitalization, Other)
  Sender: FDA-Public Use
  Company Number: SRX_00041_2010

PATIENT
  Sex: Male

DRUGS (14)
  1. TESTOSTERONE CYPIONATE [Suspect]
     Indication: BLOOD TESTOSTERONE DECREASED
     Dosage: (1 ML 1X INTRAMUSCULAR), (1 DF 1X INTRAMUSCULAR)
     Route: 030
     Dates: start: 20100419, end: 20100419
  2. TESTOSTERONE CYPIONATE [Suspect]
     Indication: BLOOD TESTOSTERONE DECREASED
     Dosage: (1 ML 1X INTRAMUSCULAR), (1 DF 1X INTRAMUSCULAR)
     Route: 030
     Dates: start: 20100827, end: 20100827
  3. TESTOSTERONE CYPIONATE [Suspect]
     Indication: BLOOD TESTOSTERONE DECREASED
     Dosage: (1 ML 1X INTRAMUSCULAR), (1 DF 1X INTRAMUSCULAR)
     Route: 030
     Dates: start: 20100911, end: 20100911
  4. TESTOSTERONE CYPIONATE [Suspect]
     Indication: BLOOD TESTOSTERONE DECREASED
     Dosage: (1 ML 1X INTRAMUSCULAR), (1 DF 1X INTRAMUSCULAR)
     Route: 030
     Dates: start: 20100925, end: 20100925
  5. BACTRIM [Suspect]
     Indication: SKIN INFECTION
     Dosage: (1 TABLET IN AM, 1 TABLET IN PM ORAL)
     Route: 048
     Dates: start: 20100425, end: 20100502
  6. BACTRIM [Suspect]
     Indication: SKIN IRRITATION
     Dosage: (1 TABLET IN AM, 1 TABLET IN PM ORAL)
     Route: 048
     Dates: start: 20100425, end: 20100502
  7. MULTI-VITAMINS [Concomitant]
  8. NATURES OWN REFLUX FREE OMEGA-3 FISH OIL [Concomitant]
  9. ADVICOR [Concomitant]
  10. IBUPROFEN [Concomitant]
  11. VYVANSE [Concomitant]
  12. PRISTIQ [Concomitant]
  13. ALPRAZOLAM [Concomitant]
  14. CEREFOLIN NAC [Concomitant]

REACTIONS (22)
  - ALANINE AMINOTRANSFERASE INCREASED [None]
  - ARTHRALGIA [None]
  - ASPARTATE AMINOTRANSFERASE INCREASED [None]
  - ASTHENIA [None]
  - CHILLS [None]
  - DYSPNOEA [None]
  - FATIGUE [None]
  - FEELING ABNORMAL [None]
  - HEADACHE [None]
  - INFLUENZA LIKE ILLNESS [None]
  - MUSCULOSKELETAL PAIN [None]
  - MUSCULOSKELETAL STIFFNESS [None]
  - MYALGIA [None]
  - NAUSEA [None]
  - NECK PAIN [None]
  - NIGHT SWEATS [None]
  - POLLAKIURIA [None]
  - PRODUCT CONTAMINATION PHYSICAL [None]
  - SKIN INFECTION [None]
  - SLUGGISHNESS [None]
  - THIRST [None]
  - UPPER RESPIRATORY TRACT INFECTION [None]
